FAERS Safety Report 6426874-0 (Version None)
Quarter: 2009Q4

REPORT INFORMATION
  Report Type: 
  Country: None (occurrence: None)
  Receive Date: 20091030
  Receipt Date: 20091022
  Transmission Date: 20100525
  Serious: Yes (Hospitalization)
  Sender: FDA-Public Use
  Company Number: 2009AL006774

PATIENT
  Age: 67 Year
  Sex: Male

DRUGS (4)
  1. SULFATRIM AND SULFATRIM PEDIATRIC SUSPENSION [Suspect]
  2. CIPROFLOXACIN [Concomitant]
  3. CEFEPIME HYDROCHLORIDE [Concomitant]
  4. MOXIFLOXACIN HCL [Concomitant]

REACTIONS (3)
  - ACUTE FEBRILE NEUTROPHILIC DERMATOSIS [None]
  - ARTHRALGIA [None]
  - EMPYEMA [None]
